FAERS Safety Report 5253028-6 (Version None)
Quarter: 2007Q1

REPORT INFORMATION
  Report Type: 
  Country: None (occurrence: None)
  Receive Date: 20070301
  Receipt Date: 20070219
  Transmission Date: 20070707
  Serious: Yes (Other)
  Sender: FDA-Public Use
  Company Number: GB-ROCHE-484044

PATIENT
  Age: 66 Year
  Sex: Female
  Weight: 101 kg

DRUGS (6)
  1. XENICAL [Suspect]
     Indication: OBESITY
     Route: 048
     Dates: start: 20070109, end: 20070201
  2. CANDESARTAN [Concomitant]
     Route: 048
  3. LEVOTHYROXINE SODIUM [Concomitant]
     Indication: HYPOTHYROIDISM
     Route: 048
  4. PARACETAMOL [Concomitant]
     Route: 048
  5. BRUFEN [Concomitant]
     Route: 048
  6. STATIN [Concomitant]

REACTIONS (1)
  - BLOOD PRESSURE INCREASED [None]
